FAERS Safety Report 8116317-3 (Version None)
Quarter: 2012Q1

REPORT INFORMATION
  Report Type: 
  Country: None (occurrence: None)
  Receive Date: 20120206
  Receipt Date: 20110121
  Transmission Date: 20120608
  Serious: Yes (Life-Threatening, Hospitalization, Other)
  Sender: FDA-Public Use
  Company Number: US-GLAXOSMITHKLINE-A0908141A

PATIENT
  Age: 72 Year
  Sex: Female
  Weight: 56.9 kg

DRUGS (4)
  1. VOTRIENT [Suspect]
     Indication: NON-SMALL CELL LUNG CANCER
     Dosage: 600MG PER DAY
     Route: 048
     Dates: start: 20101216
  2. SIMVASTATIN [Concomitant]
     Indication: HYPERCHOLESTEROLAEMIA
     Route: 048
     Dates: start: 20060204
  3. GLUCOSAMINE [Concomitant]
     Route: 048
     Dates: start: 20060204
  4. ERLOTINIB HYDROCHLORIDE [Suspect]
     Indication: NON-SMALL CELL LUNG CANCER
     Dosage: 150MG PER DAY
     Route: 048
     Dates: start: 20101216

REACTIONS (3)
  - ANAEMIA [None]
  - HEPATIC ENZYME INCREASED [None]
  - OESOPHAGEAL ULCER [None]
